FAERS Safety Report 21871866 (Version 1)
Quarter: 2023Q1

REPORT INFORMATION
  Report Type: Spontaneous
  Country: CN (occurrence: CN)
  Receive Date: 20230117
  Receipt Date: 20230117
  Transmission Date: 20230417
  Serious: Yes (Other)
  Sender: FDA-Public Use
  Company Number: CN-GLAXOSMITHKLINE-CNCH2023APC002440

PATIENT

DRUGS (1)
  1. IBUPROFEN [Suspect]
     Active Substance: IBUPROFEN
     Indication: Pyrexia
     Dosage: UNK

REACTIONS (9)
  - Vanishing bile duct syndrome [Unknown]
  - Drug-induced liver injury [Not Recovered/Not Resolved]
  - Hepatitis cholestatic [Unknown]
  - Hyperbilirubinaemia [Unknown]
  - Cholestasis [Unknown]
  - Yellow skin [Unknown]
  - Asthenia [Unknown]
  - Decreased appetite [Unknown]
  - Hyperplasia [Not Recovered/Not Resolved]
